FAERS Safety Report 15154619 (Version 5)
Quarter: 2019Q3

REPORT INFORMATION
  Report Type: Spontaneous
  Country: JP (occurrence: JP)
  Receive Date: 20180717
  Receipt Date: 20190912
  Transmission Date: 20191004
  Serious: Yes (Hospitalization, Other)
  Sender: FDA-Public Use
  Company Number: JP-009507513-1807JPN001244J

PATIENT
  Age: 1 Day
  Sex: Male
  Weight: 3 kg

DRUGS (11)
  1. BRIDION [Suspect]
     Active Substance: SUGAMMADEX
     Dosage: 200 MG ONCE DAILY
     Route: 064
     Dates: start: 20171220
  2. EPHEDRIN [Concomitant]
     Active Substance: EPHEDRINE HYDROCHLORIDE
     Dosage: UNK UNK, QD
     Route: 064
  3. ESLAX INTRAVENOUS 25MG/2.5ML [Suspect]
     Active Substance: ROCURONIUM BROMIDE
     Dosage: 10 MG 3 TIMES DAILY
     Route: 064
     Dates: start: 20171220
  4. PROPOFOL. [Concomitant]
     Active Substance: PROPOFOL
     Indication: NEUROMUSCULAR BLOCKING THERAPY
     Dosage: UNK UNK, QD
     Route: 064
  5. OXYGEN. [Concomitant]
     Active Substance: OXYGEN
     Dosage: UNK
     Route: 064
  6. REMIFENTANIL HYDROCHLORIDE. [Concomitant]
     Active Substance: REMIFENTANIL HYDROCHLORIDE
     Indication: NEUROMUSCULAR BLOCKING THERAPY
     Dosage: UNK G, UNK
     Route: 064
  7. ACELIO [Concomitant]
     Active Substance: ACETAMINOPHEN
     Dosage: UNK UNK, QD
     Route: 064
  8. ESLAX INTRAVENOUS 25MG/2.5ML [Suspect]
     Active Substance: ROCURONIUM BROMIDE
     Dosage: 70 MG ONCE DAILY
     Route: 064
     Dates: start: 20171220
  9. FENTANYL. [Concomitant]
     Active Substance: FENTANYL
     Dosage: UNK UNK, QD
     Route: 064
  10. DESFLURANE. [Concomitant]
     Active Substance: DESFLURANE
     Dosage: UNK
     Route: 064
  11. FLUMARIN [Concomitant]
     Dosage: UNK G, UNK
     Route: 064

REACTIONS (4)
  - Hypoglycaemia neonatal [Unknown]
  - Foetal exposure during pregnancy [Recovered/Resolved]
  - Weight decrease neonatal [Unknown]
  - Jaundice neonatal [Unknown]

NARRATIVE: CASE EVENT DATE: 20180606
